FAERS Safety Report 8777498 (Version 3)
Quarter: 2012Q4

REPORT INFORMATION
  Report Type: 
  Country: DK (occurrence: DK)
  Receive Date: 20120911
  Receipt Date: 20121210
  Transmission Date: 20130627
  Serious: Yes (Death, Congenital Anomaly)
  Sender: FDA-Public Use
  Company Number: DK-SANOFI-AVENTIS-2012SA062676

PATIENT

DRUGS (2)
  1. PLAQUENIL [Suspect]
     Indication: MALARIA PROPHYLAXIS
     Dosage: STYRKE: 200 mg, dosage form - code 82
     Route: 064
     Dates: start: 201201, end: 201205
  2. SULFASALAZINE [Suspect]
     Indication: RHEUMATOID ARTHRITIS
     Dosage: STYRKE: 500 mg, dosage form - code 245
     Route: 064
     Dates: start: 201103, end: 201205

REACTIONS (4)
  - Abortion induced [Fatal]
  - Meningomyelocele [Not Recovered/Not Resolved]
  - Foetal exposure during pregnancy [Not Recovered/Not Resolved]
  - Arnold-Chiari malformation [Not Recovered/Not Resolved]
